FAERS Safety Report 5525154-5 (Version None)
Quarter: 2007Q4

REPORT INFORMATION
  Report Type: 
  Country: None (occurrence: None)
  Receive Date: 20071126
  Receipt Date: 20071115
  Transmission Date: 20080405
  Serious: Yes (Hospitalization)
  Sender: FDA-Public Use
  Company Number: NL-JNJFOC-20071106072

PATIENT
  Sex: Female
  Weight: 91 kg

DRUGS (10)
  1. INFLIXIMAB [Suspect]
     Route: 042
  2. INFLIXIMAB [Suspect]
     Route: 042
  3. INFLIXIMAB [Suspect]
     Route: 042
  4. INFLIXIMAB [Suspect]
     Route: 042
  5. INFLIXIMAB [Suspect]
     Indication: CROHN'S DISEASE
     Route: 042
  6. PURINETHOL [Concomitant]
     Indication: CROHN'S DISEASE
     Dosage: 1DD2
  7. PENTASA [Concomitant]
     Indication: CROHN'S DISEASE
     Dosage: 2DD2
  8. NEXIUM [Concomitant]
     Indication: PROPHYLAXIS
     Dosage: 1DD1
  9. VENTOLIN [Concomitant]
     Dosage: 1DD1
  10. TRIMETHOPRIM [Concomitant]
     Indication: ESCHERICHIA INFECTION
     Dosage: 1DD1

REACTIONS (7)
  - COUGH [None]
  - DIARRHOEA [None]
  - HYPOGLYCAEMIA [None]
  - MALAISE [None]
  - NAUSEA [None]
  - PYREXIA [None]
  - VOMITING [None]
